FAERS Safety Report 4699490-9 (Version None)
Quarter: 2005Q2

REPORT INFORMATION
  Report Type: 
  Country: None (occurrence: None)
  Receive Date: 20050622
  Receipt Date: 20050607
  Transmission Date: 20051028
  Serious: Yes (Other)
  Sender: FDA-Public Use
  Company Number: A-CH2005-09599

PATIENT
  Age: 39 Year
  Sex: Male

DRUGS (2)
  1. TRACLEER [Suspect]
     Indication: PULMONARY HYPERTENSION
     Dosage: 125 MG, BID, ORAL
     Route: 048
     Dates: start: 20030615
  2. CRIXIVAN [Suspect]
     Indication: HIV TEST POSITIVE
     Dosage: 1000 MG, TID, UNK
     Route: 065

REACTIONS (3)
  - CD4 LYMPHOCYTES DECREASED [None]
  - DRUG INTERACTION [None]
  - DRUG LEVEL INCREASED [None]
